FAERS Safety Report 9430269 (Version 2)
Quarter: 2013Q4

REPORT INFORMATION
  Report Type: Spontaneous
  Country: IT (occurrence: IT)
  Receive Date: 20130730
  Receipt Date: 20131014
  Transmission Date: 20140711
  Serious: Yes (Other)
  Sender: FDA-Public Use
  Company Number: IT-GILEAD-2013-0080041

PATIENT
  Age: 56 Year
  Sex: Female

DRUGS (2)
  1. TRUVADA [Suspect]
     Indication: HIV INFECTION
     Dosage: 1 DF, UNK
     Route: 048
     Dates: start: 20110625, end: 20130105
  2. VIRAMUNE [Concomitant]
     Indication: HIV INFECTION
     Dosage: UNK
     Dates: start: 20110625

REACTIONS (2)
  - Osteoporosis [Recovering/Resolving]
  - Osteopenia [Recovering/Resolving]
